FAERS Safety Report 6557168-0 (Version None)
Quarter: 2010Q1

REPORT INFORMATION
  Report Type: 
  Country: None (occurrence: None)
  Receive Date: 20100127
  Receipt Date: 20100127
  Transmission Date: 20100710
  Serious: Yes (Other)
  Sender: FDA-Public Use
  Company Number: None

PATIENT
  Sex: Female
  Weight: 68.2 kg

DRUGS (1)
  1. VIVAGLOBIN [Suspect]
     Dosage: 49 ML ONCE

REACTIONS (7)
  - DIZZINESS [None]
  - INFUSION SITE ERYTHEMA [None]
  - INFUSION SITE PAIN [None]
  - INFUSION SITE SWELLING [None]
  - NAUSEA [None]
  - PAIN [None]
  - VOMITING [None]
